FAERS Safety Report 10157019 (Version 2)
Quarter: 2014Q2

REPORT INFORMATION
  Report Type: Report from Study
  Country: JP (occurrence: JP)
  Receive Date: 20140507
  Receipt Date: 20140620
  Transmission Date: 20141212
  Serious: Yes (Life-Threatening, Hospitalization)
  Sender: FDA-Public Use
  Company Number: JP-SA-2014SA059049

PATIENT
  Age: 50 Year
  Sex: Male
  Weight: 68.5 kg

DRUGS (8)
  1. THYMOGLOBULINE [Suspect]
     Indication: APLASTIC ANAEMIA
     Route: 042
     Dates: start: 20130909, end: 20130913
  2. NEORAL [Concomitant]
     Indication: APLASTIC ANAEMIA
     Dates: start: 20130830
  3. BAKTAR [Concomitant]
     Indication: INFECTION PROPHYLAXIS
     Dates: start: 20130822
  4. FLUCONAZOLE [Concomitant]
     Indication: INFECTION PROPHYLAXIS
     Dates: start: 20130905
  5. PROTECADIN [Concomitant]
     Indication: CHRONIC GASTRITIS
     Dates: start: 20130822, end: 20130911
  6. PARIET [Concomitant]
     Indication: GASTRITIS
     Dates: start: 20130912
  7. CRAVIT [Concomitant]
     Indication: INFECTION PROPHYLAXIS
     Dates: start: 20130912, end: 20130913
  8. GRAN [Concomitant]
     Indication: APLASTIC ANAEMIA
     Dates: start: 20130912, end: 20131214

REACTIONS (1)
  - Febrile neutropenia [Recovered/Resolved]
